FAERS Safety Report 19890254 (Version 1)
Quarter: 2021Q3

REPORT INFORMATION
  Report Type: Spontaneous
  Country: US (occurrence: US)
  Receive Date: 20210928
  Receipt Date: 20210928
  Transmission Date: 20211014
  Serious: Yes (Hospitalization)
  Sender: FDA-Public Use
  Company Number: None

PATIENT
  Age: 36 Year
  Sex: Female
  Weight: 70.3 kg

DRUGS (2)
  1. ZONEGRAN [Concomitant]
     Active Substance: ZONISAMIDE
  2. BAMLANIVIMAB AND ETESEVIMAB [Suspect]
     Active Substance: BAMLANIVIMAB\ETESEVIMAB
     Indication: COVID-19
     Dosage: ?          OTHER FREQUENCY:ONCE;?
     Route: 042
     Dates: start: 20210923, end: 20210923

REACTIONS (17)
  - Infusion related reaction [None]
  - Ageusia [None]
  - Headache [None]
  - Abdominal pain upper [None]
  - Dyspnoea [None]
  - Hot flush [None]
  - Throat tightness [None]
  - Asthenia [None]
  - Confusional state [None]
  - Dizziness [None]
  - Cough [None]
  - Flushing [None]
  - Chest discomfort [None]
  - Fatigue [None]
  - Pulmonary congestion [None]
  - Hypersensitivity [None]
  - Anosmia [None]

NARRATIVE: CASE EVENT DATE: 20210923
